FAERS Safety Report 9093994 (Version 3)
Quarter: 2013Q3

REPORT INFORMATION
  Report Type: Report from Study
  Country: GR (occurrence: GR)
  Receive Date: 20130201
  Receipt Date: 20130722
  Transmission Date: 20140515
  Serious: Yes (Other)
  Sender: FDA-Public Use
  Company Number: GR-ROCHE-1185756

PATIENT
  Age: 85 Year
  Sex: Male

DRUGS (7)
  1. RITUXIMAB [Suspect]
     Indication: RHEUMATOID ARTHRITIS
     Route: 042
     Dates: start: 20120718
  2. CICLOSPORIN [Suspect]
     Indication: RHEUMATOID ARTHRITIS
     Route: 048
     Dates: start: 200101, end: 20130129
  3. MEDROL [Concomitant]
     Indication: RHEUMATOID ARTHRITIS
     Route: 048
     Dates: start: 2001
  4. BARACLUDE [Concomitant]
     Indication: HEPATITIS B
     Route: 048
     Dates: start: 201211
  5. LASIX [Concomitant]
     Indication: HYPERTENSION
     Route: 048
     Dates: start: 1996
  6. CALCIORAL D3 [Concomitant]
     Indication: OSTEOPENIA
     Route: 048
     Dates: start: 20071101
  7. NEOCARDON [Concomitant]
     Indication: HYPERTENSION
     Dosage: 50MG - 25MG
     Route: 048
     Dates: start: 1996

REACTIONS (1)
  - Squamous cell carcinoma [Recovered/Resolved]
